FAERS Safety Report 8909800 (Version 1)
Quarter: 2012Q4

REPORT INFORMATION
  Report Type: Spontaneous
  Country: US (occurrence: None)
  Receive Date: 20121109
  Receipt Date: 20121109
  Transmission Date: 20130627
  Serious: Yes (Hospitalization, Other)
  Sender: FDA-Public Use
  Company Number: US-INDICUS PHARMA-000037

PATIENT
  Sex: Female
  Weight: 3 kg

DRUGS (2)
  1. METFORMIN HYDROCHLORIDE [Suspect]
     Indication: DIABETES MELLITUS
     Route: 064
  2. INSULIN [Suspect]
     Indication: DIABETES MELLITUS
     Route: 064

REACTIONS (4)
  - Maternal drugs affecting foetus [None]
  - Hypoglycaemia neonatal [None]
  - Hyperbilirubinaemia neonatal [None]
  - Treatment noncompliance [None]
